FAERS Safety Report 19083239 (Version 1)
Quarter: 2021Q2

REPORT INFORMATION
  Report Type: Spontaneous
  Country: US (occurrence: US)
  Receive Date: 20210401
  Receipt Date: 20210401
  Transmission Date: 20210717
  Serious: Yes (Life-Threatening)
  Sender: FDA-Public Use
  Company Number: None

PATIENT
  Age: 60 Year
  Sex: Male
  Weight: 75 kg

DRUGS (3)
  1. DEXAMETHASONE 10MG BID [Concomitant]
     Dates: start: 20210330
  2. AZITHROMYCIN 500MG [Concomitant]
     Active Substance: AZITHROMYCIN
     Dates: start: 20210330, end: 20210330
  3. REMDESIVIR. [Suspect]
     Active Substance: REMDESIVIR
     Indication: COVID-19 PNEUMONIA
     Route: 040

REACTIONS (2)
  - Sinus bradycardia [None]
  - Electrocardiogram QT prolonged [None]

NARRATIVE: CASE EVENT DATE: 20210331
